FAERS Safety Report 17605109 (Version 4)
Quarter: 2020Q2

REPORT INFORMATION
  Report Type: Spontaneous
  Country: AU (occurrence: AU)
  Receive Date: 20200331
  Receipt Date: 20200619
  Transmission Date: 20200713
  Serious: Yes (Life-Threatening, Hospitalization, Other)
  Sender: FDA-Public Use
  Company Number: AU-ACCORD-177661

PATIENT
  Age: 67 Year
  Sex: Male

DRUGS (5)
  1. ACETYLSALICYLIC ACID [Concomitant]
     Active Substance: ASPIRIN
     Indication: MYOCARDIAL ISCHAEMIA
  2. CLOPIDOGREL [Suspect]
     Active Substance: CLOPIDOGREL BISULFATE
     Indication: MYOCARDIAL ISCHAEMIA
  3. ATORVASTATIN [Concomitant]
     Active Substance: ATORVASTATIN
  4. PERINDOPRIL [Concomitant]
     Active Substance: PERINDOPRIL
  5. NICORANDIL [Concomitant]
     Active Substance: NICORANDIL

REACTIONS (1)
  - Insulin autoimmune syndrome [Recovered/Resolved]
